FAERS Safety Report 6298325-0 (Version None)
Quarter: 2009Q3

REPORT INFORMATION
  Report Type: 
  Country: None (occurrence: None)
  Receive Date: 20090805
  Receipt Date: 20090725
  Transmission Date: 20100115
  Serious: Yes (Other)
  Sender: FDA-Public Use
  Company Number: PHHY2009MX31214

PATIENT
  Age: 73 Year
  Sex: Female

DRUGS (2)
  1. DIOVAN HCT [Suspect]
     Indication: HYPERTENSION
     Dosage: 1 TABLET PER DAY
     Dates: start: 20050701, end: 20070101
  2. DIOVAN HCT [Suspect]
     Dosage: 1.5 TABLET PER DAY
     Dates: start: 20070101

REACTIONS (6)
  - CHOLELITHIASIS [None]
  - FALL [None]
  - GALLBLADDER OPERATION [None]
  - OEDEMA PERIPHERAL [None]
  - SPLINT APPLICATION [None]
  - WRIST FRACTURE [None]
